FAERS Safety Report 18325658 (Version 1)
Quarter: 2020Q3

REPORT INFORMATION
  Report Type: Report from Study
  Country: US (occurrence: US)
  Receive Date: 20200929
  Receipt Date: 20200929
  Transmission Date: 20201103
  Serious: No
  Sender: FDA-Public Use
  Company Number: US-IPSEN BIOPHARMACEUTICALS, INC.-2020-15718

PATIENT
  Age: 65 Year
  Sex: Female
  Weight: 52.16 kg

DRUGS (20)
  1. DYSPORT [Suspect]
     Active Substance: ABOBOTULINUMTOXINA
     Indication: SKIN WRINKLING
  2. RELPAX [Concomitant]
     Active Substance: ELETRIPTAN HYDROBROMIDE
     Dosage: 1 TABLET EVERY DAY AS REQUIRED MAY REPEAT AFTER 2 HOURS LIMIT 2/DAY, 2DAYS/WEEK
     Route: 048
  3. LORZONE [Concomitant]
     Active Substance: CHLORZOXAZONE
     Dosage: 1/3, 1/2, 1 TABLET Q8H AS NEEDED
  4. DYSPORT [Suspect]
     Active Substance: ABOBOTULINUMTOXINA
     Indication: OFF LABEL USE
  5. AMLODIPINE [Concomitant]
     Active Substance: AMLODIPINE BESYLATE
     Dosage: 30 DAYS
     Route: 048
  6. TRAMADOL. [Concomitant]
     Active Substance: TRAMADOL
     Dosage: 1 TO 2 TABLETS BY MOUTH EVERY 8 HOURS AS NEEDED
     Route: 048
  7. CALCIUM [Concomitant]
     Active Substance: CALCIUM
     Dosage: 600
     Route: 048
  8. CLOBETASOL [Concomitant]
     Active Substance: CLOBETASOL
     Dosage: 0.05% SCALP SOLUTION 30 DAYS
  9. DYSPORT [Suspect]
     Active Substance: ABOBOTULINUMTOXINA
     Indication: SKIN WRINKLING
  10. MELOXICAM. [Concomitant]
     Active Substance: MELOXICAM
     Dosage: 30 DAYS
     Route: 048
  11. VIMPAT [Concomitant]
     Active Substance: LACOSAMIDE
     Route: 048
  12. PANTOPRAZOLE [Concomitant]
     Active Substance: PANTOPRAZOLE
     Dosage: DELAYED RELEASE (DR/EC) 30 DAYS
     Route: 048
  13. FLUTICASONE. [Concomitant]
     Active Substance: FLUTICASONE
     Route: 045
  14. DYSPORT [Suspect]
     Active Substance: ABOBOTULINUMTOXINA
     Indication: TORTICOLLIS
     Dosage: 1375 IU CERVICAL DYSTONIA, PROCERUS, BILATERAL CORRUGATOR, FRONTALIS, LATERAL FRONTALIS, TEMPORALIS
     Route: 065
     Dates: start: 20191113, end: 20191113
  15. VIMPAT [Concomitant]
     Active Substance: LACOSAMIDE
     Route: 048
  16. DYSPORT [Suspect]
     Active Substance: ABOBOTULINUMTOXINA
     Indication: SKIN WRINKLING
  17. DYSPORT [Suspect]
     Active Substance: ABOBOTULINUMTOXINA
     Indication: SKIN WRINKLING
  18. ALENDRONATE [Concomitant]
     Active Substance: ALENDRONATE SODIUM
     Dosage: 28 DAYS
     Route: 048
  19. AMITRIPTYLINE [Concomitant]
     Active Substance: AMITRIPTYLINE
     Dosage: EVERYDAY AT BEDTIME, 90 DAYS
     Route: 048
  20. CYCLOBENZAPRINE. [Concomitant]
     Active Substance: CYCLOBENZAPRINE
     Dosage: 1 TABLET BY MOUTH AT BEDTIME AS NEEDED

REACTIONS (6)
  - Muscular weakness [Recovered/Resolved]
  - Dysphagia [Recovered/Resolved]
  - Product preparation error [Unknown]
  - Prescribed overdose [Unknown]
  - Adverse event [Unknown]
  - Off label use [Unknown]

NARRATIVE: CASE EVENT DATE: 201911
